FAERS Safety Report 4695074-7 (Version None)
Quarter: 2005Q2

REPORT INFORMATION
  Report Type: 
  Country: None (occurrence: None)
  Receive Date: 20050617
  Receipt Date: 20050607
  Transmission Date: 20051028
  Serious: Yes (Other)
  Sender: FDA-Public Use
  Company Number: 2005084239

PATIENT
  Age: 69 Year
  Sex: Male

DRUGS (2)
  1. NORVASC [Suspect]
     Indication: HYPERTENSION
     Dosage: 5 MG (1 IN 1 D), ORAL
     Route: 048
     Dates: start: 20050426, end: 20050508
  2. NORMONAL (TRIPAMIDE) [Suspect]
     Indication: HYPERTENSION
     Dosage: 15 MG, ORAL
     Route: 048
     Dates: start: 20050420, end: 20050508

REACTIONS (2)
  - BLOOD CREATINE PHOSPHOKINASE INCREASED [None]
  - MUSCLE SPASMS [None]
